FAERS Safety Report 10029831 (Version 2)
Quarter: 2014Q3

REPORT INFORMATION
  Report Type: Spontaneous
  Country: US (occurrence: None)
  Receive Date: 20140320
  Receipt Date: 20140710
  Transmission Date: 20150326
  Serious: Yes (Hospitalization)
  Sender: FDA-Public Use
  Company Number: 2014-US-002682

PATIENT
  Age: 29 Year
  Sex: Female
  Weight: 56.7 kg

DRUGS (6)
  1. XYREM [Suspect]
     Active Substance: SODIUM OXYBATE
     Indication: NARCOLEPSY
     Route: 048
     Dates: start: 201310, end: 2013
  2. LITHIUM [Concomitant]
     Active Substance: LITHIUM CARBONATE
  3. ADDERAL (AMFETAMINE ASPARTATE, AMFETAMINE SULFATE, DEXAMFETAMINE SACCHARATE, DEXAMFETAMINE SULFATE) [Concomitant]
  4. XYREM [Suspect]
     Active Substance: SODIUM OXYBATE
     Indication: CATAPLEXY
     Route: 048
     Dates: start: 201310, end: 2013
  5. TRILEPTAL [Concomitant]
     Active Substance: OXCARBAZEPINE
  6. LATUDA (LURASIDONE HYDROCHLORIDE) [Concomitant]

REACTIONS (1)
  - Mental disorder [None]

NARRATIVE: CASE EVENT DATE: 20131104
